FAERS Safety Report 8388292-8 (Version None)
Quarter: 2012Q2

REPORT INFORMATION
  Report Type: 
  Country: None (occurrence: None)
  Receive Date: 20120525
  Receipt Date: 20120403
  Transmission Date: 20120825
  Serious: No
  Sender: FDA-Public Use
  Company Number: US-BAUSCH-2012BL002382

PATIENT
  Age: 70 Year
  Sex: Male

DRUGS (7)
  1. FLUOCINOLONE ACETONIDE [Suspect]
     Indication: CYSTOID MACULAR OEDEMA
     Route: 031
     Dates: start: 20051102
  2. HYDROCHLOROTHIAZIDE [Concomitant]
     Indication: HYPERTENSION
  3. TETRACYCLINE [Concomitant]
     Indication: ROSACEA
  4. NIASPAN [Concomitant]
     Indication: BLOOD CHOLESTEROL INCREASED
  5. CELEXA [Concomitant]
     Indication: ANXIETY
  6. SYNTHROID [Concomitant]
  7. CIALIS [Concomitant]

REACTIONS (2)
  - DEVICE BREAKAGE [None]
  - VITREOUS FLOATERS [None]
